FAERS Safety Report 13541309 (Version 1)
Quarter: 2017Q2

REPORT INFORMATION
  Report Type: Report from Study
  Country: ZA (occurrence: ZA)
  Receive Date: 20170512
  Receipt Date: 20170512
  Transmission Date: 20170830
  Serious: Yes (Death, Other)
  Sender: FDA-Public Use
  Company Number: ZA-AMGEN-ZAFSL2017072315

PATIENT
  Age: 51 Year
  Sex: Male

DRUGS (2)
  1. ARANESP [Suspect]
     Active Substance: DARBEPOETIN ALFA
     Indication: ANAEMIA
  2. ARANESP [Suspect]
     Active Substance: DARBEPOETIN ALFA
     Indication: CHRONIC KIDNEY DISEASE
     Dosage: 40 MUG, 3 TIMES A MONTH
     Route: 058
     Dates: start: 201603, end: 201705

REACTIONS (1)
  - Death [Fatal]

NARRATIVE: CASE EVENT DATE: 20170510
